FAERS Safety Report 4615819-1 (Version None)
Quarter: 2005Q1

REPORT INFORMATION
  Report Type: 
  Country: None (occurrence: None)
  Receive Date: 20050309
  Receipt Date: 20040910
  Transmission Date: 20050727
  Serious: Yes (Hospitalization, Other)
  Sender: FDA-Public Use
  Company Number: 2004033277

PATIENT
  Age: 56 Year
  Sex: Male
  Weight: 58.9676 kg

DRUGS (4)
  1. NIFEDIPINE [Suspect]
     Indication: HYPERTENSION
     Dosage: 90 MG (90 MG, 1 IN 1 D), ORAL
     Route: 048
     Dates: start: 20040129, end: 20040220
  2. METPROLOL (METOPROLOL) [Concomitant]
  3. CLONIDINE [Concomitant]
  4. NIFEDIPINE [Concomitant]

REACTIONS (7)
  - CHEST PAIN [None]
  - DIZZINESS [None]
  - GINGIVAL BLEEDING [None]
  - GINGIVAL SWELLING [None]
  - HEART INJURY [None]
  - HEART RATE INCREASED [None]
  - PALPITATIONS [None]
